FAERS Safety Report 9703731 (Version 1)
Quarter: 2013Q4

REPORT INFORMATION
  Report Type: Report from Study
  Country: CA (occurrence: CA)
  Receive Date: 20131122
  Receipt Date: 20131122
  Transmission Date: 20140711
  Serious: Yes (Other)
  Sender: FDA-Public Use
  Company Number: CA-JNJFOC-20131112379

PATIENT
  Age: 52 Year
  Sex: Female
  Weight: 94.3 kg

DRUGS (8)
  1. REMICADE [Suspect]
     Indication: PSORIASIS
     Dosage: ELEVENTH INFUSION
     Route: 042
     Dates: start: 20131115
  2. REMICADE [Suspect]
     Indication: PSORIASIS
     Dosage: 4 VIALS OF INFLIXIMAB
     Route: 042
     Dates: start: 20130920
  3. REMICADE [Suspect]
     Indication: PSORIASIS
     Route: 042
     Dates: start: 2012
  4. CARVEDILOL [Concomitant]
     Route: 065
  5. SPIRONOLACTONE [Concomitant]
     Route: 065
  6. SIMVASTATIN [Concomitant]
     Route: 065
  7. RAMIPRIL [Concomitant]
     Route: 065
  8. FUROSEMIDE [Concomitant]
     Route: 065

REACTIONS (1)
  - Arthritis [Recovering/Resolving]
